FAERS Safety Report 5091411-2 (Version None)
Quarter: 2006Q3

REPORT INFORMATION
  Report Type: 
  Country: None (occurrence: None)
  Receive Date: 20060824
  Receipt Date: 20060811
  Transmission Date: 20061208
  Serious: Yes (Hospitalization)
  Sender: FDA-Public Use
  Company Number: HQWYE424214AUG06

PATIENT
  Age: 46 Year
  Sex: Female
  Weight: 69.01 kg

DRUGS (12)
  1. PROTONIX [Suspect]
     Indication: DYSPEPSIA
     Dosage: 40 MG 1X PER 1 DAY, ORAL
     Route: 048
     Dates: start: 20050101
  2. PROTONIX [Suspect]
     Indication: GASTRIC DISORDER
     Dosage: 40 MG 1X PER 1 DAY, ORAL
     Route: 048
     Dates: start: 20050101
  3. MVI 3 (BIOTIN/CYANOCOBALAMIN/FOLIC ACID) [Concomitant]
  4. NEURONTIN [Concomitant]
  5. FUROSEMIDE [Concomitant]
  6. SPIRONOLACTONE [Concomitant]
  7. PENTOXIFYLLINE [Concomitant]
  8. LEVOXYL [Concomitant]
  9. MAGNESIUM [Concomitant]
  10. POTASSIUM [Concomitant]
  11. CALCIUM GLUCONATE [Concomitant]
  12. VITAMIN D [Concomitant]

REACTIONS (3)
  - COELIAC DISEASE [None]
  - DIARRHOEA [None]
  - VOMITING [None]
